FAERS Safety Report 5109014-X (Version None)
Quarter: 2006Q3

REPORT INFORMATION
  Report Type: 
  Country: None (occurrence: None)
  Receive Date: 20060918
  Receipt Date: 20060829
  Transmission Date: 20061208
  Serious: Yes (Other)
  Sender: FDA-Public Use
  Company Number: 6025394

PATIENT
  Sex: Male

DRUGS (2)
  1. BISOPROLOL FUMARATE [Suspect]
     Indication: CARDIAC DISORDER
     Dosage: BISOPROLOL-RATIOPHARM 2,5 FILMTABLETTEN (1,25 MG, 1 IN 1 D) ORAL
     Route: 048
     Dates: start: 20060701, end: 20060710
  2. BISOPROLOL FUMARATE [Suspect]
     Indication: HYPERTENSION
     Dosage: BISOPROLOL-RATIOPHARM 2,5 FILMTABLETTEN (1,25 MG, 1 IN 1 D) ORAL
     Route: 048
     Dates: start: 20060701, end: 20060710

REACTIONS (3)
  - BLOOD PRESSURE DECREASED [None]
  - CARDIAC FLUTTER [None]
  - HEART RATE INCREASED [None]
